FAERS Safety Report 7531313-2 (Version None)
Quarter: 2011Q2

REPORT INFORMATION
  Report Type: 
  Country: None (occurrence: None)
  Receive Date: 20110608
  Receipt Date: 20110601
  Transmission Date: 20111010
  Serious: Yes (Hospitalization)
  Sender: FDA-Public Use
  Company Number: FR-SANOFI-AVENTIS-2011SA034861

PATIENT
  Sex: Male

DRUGS (3)
  1. SINTROM [Suspect]
     Indication: PHLEBITIS
     Route: 048
  2. ETANERCEPT [Suspect]
     Indication: PSORIATIC ARTHROPATHY
     Route: 058
     Dates: start: 20110201, end: 20110301
  3. RIFAMPIN AND ISONIAZID [Suspect]
     Indication: LATENT TUBERCULOSIS
     Route: 048
     Dates: start: 20110201

REACTIONS (1)
  - PHLEBITIS [None]
